FAERS Safety Report 11620518 (Version 1)
Quarter: 2015Q4

REPORT INFORMATION
  Report Type: Spontaneous
  Country: FI (occurrence: FI)
  Receive Date: 20151012
  Receipt Date: 20151012
  Transmission Date: 20160304
  Serious: Yes (Other)
  Sender: FDA-Public Use
  Company Number: FI-ASTELLAS-2015US031285

PATIENT
  Age: 86 Year
  Sex: Female

DRUGS (1)
  1. BETMIGA [Suspect]
     Active Substance: MIRABEGRON
     Indication: HYPERTONIC BLADDER
     Route: 065
     Dates: start: 20150424, end: 20150820

REACTIONS (2)
  - Urine output decreased [Recovered/Resolved]
  - Dysuria [Recovered/Resolved]
